FAERS Safety Report 4831458-1 (Version None)
Quarter: 2005Q4

REPORT INFORMATION
  Report Type: 
  Country: None (occurrence: None)
  Receive Date: 20051116
  Receipt Date: 20051101
  Transmission Date: 20060501
  Serious: Yes (Hospitalization)
  Sender: FDA-Public Use
  Company Number: 2005US002710

PATIENT
  Age: 78 Year
  Sex: Female
  Weight: 65 kg

DRUGS (22)
  1. ALOXI [Suspect]
     Indication: PROPHYLAXIS OF NAUSEA AND VOMITING
     Dosage: 0.25 MG, SINGLE, INTRAVENOUS
     Route: 042
     Dates: start: 20051020, end: 20051020
  2. ALOXI [Suspect]
     Indication: PROPHYLAXIS OF NAUSEA AND VOMITING
     Dosage: 0.25 MG, SINGLE, INTRAVENOUS
     Route: 042
     Dates: start: 20051031, end: 20051031
  3. ALOXI [Suspect]
     Indication: PROPHYLAXIS OF NAUSEA AND VOMITING
     Dosage: 0.25 MG, SINGLE, INTRAVENOUS
     Route: 042
     Dates: start: 20051107, end: 20051107
  4. DEXAMETHASONE [Suspect]
     Indication: PROPHYLAXIS OF NAUSEA AND VOMITING
     Dosage: 20 MG, QWK, INTRAVENOUS
     Route: 042
     Dates: start: 20051020, end: 20051020
  5. DEXAMETHASONE [Suspect]
     Indication: PROPHYLAXIS OF NAUSEA AND VOMITING
     Dosage: 20 MG, QWK, INTRAVENOUS
     Route: 042
     Dates: start: 20051031, end: 20051031
  6. DEXAMETHASONE [Suspect]
     Indication: PROPHYLAXIS OF NAUSEA AND VOMITING
     Dosage: 20 MG, QWK, INTRAVENOUS
     Route: 042
     Dates: start: 20051107, end: 20051107
  7. ZANTAC [Suspect]
     Indication: PROPHYLAXIS OF NAUSEA AND VOMITING
     Dosage: 50 MG, QWK, INTRAVENOUS
     Route: 042
     Dates: start: 20051020, end: 20051020
  8. ZANTAC [Suspect]
     Indication: PROPHYLAXIS OF NAUSEA AND VOMITING
     Dosage: 50 MG, QWK, INTRAVENOUS
     Route: 042
     Dates: start: 20051031, end: 20051031
  9. ZANTAC [Suspect]
     Indication: PROPHYLAXIS OF NAUSEA AND VOMITING
     Dosage: 50 MG, QWK, INTRAVENOUS
     Route: 042
     Dates: start: 20051107, end: 20051107
  10. TAXOL [Suspect]
     Indication: BREAST CANCER METASTATIC
     Dosage: QWK, INTRAVENOUS
     Route: 042
     Dates: start: 20051031, end: 20051031
  11. TAXOL [Suspect]
     Indication: BREAST CANCER METASTATIC
     Dosage: QWK, INTRAVENOUS
     Route: 042
     Dates: start: 20051107, end: 20051107
  12. ZOMETA [Concomitant]
  13. ARANESP [Concomitant]
  14. HERCEPTIN  GENENTECH (TRASTUZUMAB) [Concomitant]
  15. HEPARIN [Concomitant]
  16. MULTIVIT (VITAMINS NOS) [Concomitant]
  17. SENNA (SENNA ALEXANDRINA) [Concomitant]
  18. PROTONIX [Concomitant]
  19. FOLIC ACID [Concomitant]
  20. COUMADIN [Concomitant]
  21. PREDNISONE [Concomitant]
  22. TYLENOL [Concomitant]

REACTIONS (16)
  - ARTHRALGIA [None]
  - BACK PAIN [None]
  - BLOOD PRESSURE INCREASED [None]
  - BUTTOCK PAIN [None]
  - CHEST DISCOMFORT [None]
  - CHILLS [None]
  - DYSPNOEA [None]
  - GROIN PAIN [None]
  - HAEMOLYSIS [None]
  - HEART RATE INCREASED [None]
  - INFUSION RELATED REACTION [None]
  - MOVEMENT DISORDER [None]
  - OXYGEN SATURATION DECREASED [None]
  - PAIN IN EXTREMITY [None]
  - PROTHROMBIN TIME PROLONGED [None]
  - PULMONARY EMBOLISM [None]
